FAERS Safety Report 7481304-5 (Version None)
Quarter: 2011Q2

REPORT INFORMATION
  Report Type: 
  Country: None (occurrence: None)
  Receive Date: 20110506
  Receipt Date: 20110429
  Transmission Date: 20111010
  Serious: Yes (Death, Hospitalization)
  Sender: FDA-Public Use
  Company Number: UTC-006789

PATIENT
  Age: 58 Year
  Sex: Female
  Weight: 99.5 kg

DRUGS (4)
  1. LETAIRIS [Concomitant]
  2. COUMADIN [Concomitant]
  3. REVATIO [Concomitant]
  4. REMODULIN [Suspect]
     Indication: PULMONARY ARTERIAL HYPERTENSION
     Dosage: 87.264 UG/KG (0.0606 UG/KG, 1 IN 1 MIN),SUBCUTANEOUS
     Route: 057
     Dates: start: 20070727, end: 20110428

REACTIONS (2)
  - RENAL FAILURE [None]
  - FLUID OVERLOAD [None]
